FAERS Safety Report 7560341-6 (Version None)
Quarter: 2011Q2

REPORT INFORMATION
  Report Type: 
  Country: None (occurrence: None)
  Receive Date: 20110621
  Receipt Date: 20110610
  Transmission Date: 20111010
  Serious: Yes (Hospitalization)
  Sender: FDA-Public Use
  Company Number: GR-JNJFOC-20110605584

PATIENT
  Sex: Male
  Weight: 65 kg

DRUGS (3)
  1. PREDNISOLONE [Suspect]
     Indication: PROSTATE CANCER METASTATIC
     Route: 048
     Dates: start: 20110606
  2. ABIRATERONE ACETATE [Suspect]
     Indication: PROSTATE CANCER METASTATIC
     Route: 048
  3. ABIRATERONE ACETATE [Suspect]
     Route: 048

REACTIONS (2)
  - URINARY TRACT INFECTION [None]
  - ANAEMIA [None]
